FAERS Safety Report 13577998 (Version 1)
Quarter: 2017Q2

REPORT INFORMATION
  Report Type: Spontaneous
  Country: RU (occurrence: RU)
  Receive Date: 20170524
  Receipt Date: 20170524
  Transmission Date: 20170830
  Serious: Yes (Life-Threatening)
  Sender: FDA-Public Use
  Company Number: RU-ABBVIE-17P-251-1986485-00

PATIENT
  Age: 6 Year
  Sex: Male

DRUGS (1)
  1. DEPAKIN CHRONO [Suspect]
     Active Substance: VALPROIC ACID
     Indication: PRODUCT USED FOR UNKNOWN INDICATION
     Route: 048

REACTIONS (1)
  - Epilepsy [Recovering/Resolving]
